FAERS Safety Report 9205170 (Version 1)
Quarter: 2013Q2

REPORT INFORMATION
  Report Type: Spontaneous
  Country: BR (occurrence: BR)
  Receive Date: 20130402
  Receipt Date: 20130402
  Transmission Date: 20140414
  Serious: Yes (Other)
  Sender: FDA-Public Use
  Company Number: BR-MYLANLABS-2013S1006473

PATIENT
  Age: 46 Year
  Sex: Male

DRUGS (5)
  1. TENOFOVIR DISOPROXIL FUMARATE [Suspect]
     Indication: HIV INFECTION
     Route: 065
  2. LAMIVUDINE [Suspect]
     Indication: HIV INFECTION
     Route: 065
  3. EFAVIRENZ [Suspect]
     Indication: HIV INFECTION
     Route: 065
  4. ZIDOVUDINE [Suspect]
     Indication: HIV INFECTION
     Route: 065
     Dates: start: 200905
  5. KALETRA [Suspect]
     Indication: HIV INFECTION
     Route: 065
     Dates: start: 200905

REACTIONS (1)
  - Porphyria non-acute [Not Recovered/Not Resolved]
